FAERS Safety Report 23833382 (Version 1)
Quarter: 2024Q2

REPORT INFORMATION
  Report Type: Spontaneous
  Country: CA (occurrence: CA)
  Receive Date: 20240508
  Receipt Date: 20240508
  Transmission Date: 20240716
  Serious: Yes (Other)
  Sender: FDA-Public Use
  Company Number: CA-TEVA-VS-3195746

PATIENT
  Age: 79 Year
  Sex: Male

DRUGS (1)
  1. METOPROLOL [Suspect]
     Active Substance: METOPROLOL
     Indication: Product used for unknown indication
     Route: 065

REACTIONS (4)
  - Acute myocardial infarction [Unknown]
  - Post procedural haemorrhage [Unknown]
  - Iron deficiency anaemia [Unknown]
  - Haemoglobin decreased [Unknown]
